FAERS Safety Report 5232488-0 (Version None)
Quarter: 2007Q1

REPORT INFORMATION
  Report Type: 
  Country: None (occurrence: None)
  Receive Date: 20070206
  Receipt Date: 20070206
  Transmission Date: 20070707
  Serious: Yes (Hospitalization)
  Sender: FDA-Public Use
  Company Number: None

PATIENT
  Age: 81 Year
  Sex: Male
  Weight: 81.5 kg

DRUGS (2)
  1. CIPROFLOXACIN [Suspect]
     Indication: PROPHYLAXIS
     Dosage: PO
     Route: 048
     Dates: start: 20070123, end: 20070126
  2. LEVOFLOXACIN [Suspect]
     Indication: EVIDENCE BASED TREATMENT
     Dosage: 750MG PO
     Route: 048
     Dates: start: 20070131, end: 20070131

REACTIONS (6)
  - ECCHYMOSIS [None]
  - ERYTHEMA MULTIFORME [None]
  - HAEMATURIA [None]
  - POST PROCEDURAL COMPLICATION [None]
  - TOXIC EPIDERMAL NECROLYSIS [None]
  - URINARY RETENTION [None]
